FAERS Safety Report 17046804 (Version 2)
Quarter: 2019Q4

REPORT INFORMATION
  Report Type: Spontaneous
  Country: US (occurrence: US)
  Receive Date: 20191119
  Receipt Date: 20191217
  Transmission Date: 20200122
  Serious: No
  Sender: FDA-Public Use
  Company Number: US-SAGE-2019SAGE000069

PATIENT

DRUGS (2)
  1. EFFEXOR [Concomitant]
     Active Substance: VENLAFAXINE HYDROCHLORIDE
     Indication: PERINATAL DEPRESSION
     Dosage: 75 MG, DAILY
     Route: 065
  2. ZULRESSO [Suspect]
     Active Substance: BREXANOLONE
     Indication: PERINATAL DEPRESSION
     Dosage: 100MG/20ML SINGLE-DOSE VIAL
     Route: 042
     Dates: start: 20191105, end: 20191108

REACTIONS (5)
  - Head discomfort [Recovered/Resolved]
  - Crying [Recovered/Resolved]
  - Infusion site extravasation [Unknown]
  - Somnolence [Recovered/Resolved]
  - Product administration error [Recovered/Resolved]

NARRATIVE: CASE EVENT DATE: 201911
